FAERS Safety Report 24045936 (Version 1)
Quarter: 2024Q3

REPORT INFORMATION
  Report Type: Spontaneous
  Country: SE (occurrence: SE)
  Receive Date: 20240703
  Receipt Date: 20240703
  Transmission Date: 20241016
  Serious: Yes (Other)
  Sender: TEVA
  Company Number: SE-TEVA-VS-3212513

PATIENT
  Age: 8 Year
  Sex: Female

DRUGS (11)
  1. TACROLIMUS [Suspect]
     Active Substance: TACROLIMUS
     Indication: Dermatomyositis
     Route: 065
  2. PREDNISOLONE [Suspect]
     Active Substance: PREDNISOLONE
     Indication: Dermatomyositis
     Route: 048
  3. PREDNISOLONE [Suspect]
     Active Substance: PREDNISOLONE
     Indication: Dermatomyositis
     Route: 065
  4. MYCOPHENOLATE MOFETIL [Suspect]
     Active Substance: MYCOPHENOLATE MOFETIL
     Indication: Dermatomyositis
     Route: 065
  5. TOFACITINIB [Suspect]
     Active Substance: TOFACITINIB
     Indication: Dermatomyositis
     Route: 065
  6. HYDROXYCHLOROQUINE [Suspect]
     Active Substance: HYDROXYCHLOROQUINE
     Indication: Dermatomyositis
     Route: 065
  7. METHOTREXATE [Concomitant]
     Active Substance: METHOTREXATE
     Indication: Dermatomyositis
     Route: 058
  8. SODIUM THIOSULFATE [Suspect]
     Active Substance: SODIUM THIOSULFATE
     Indication: Calcinosis
     Route: 061
  9. INFLIXIMAB [Suspect]
     Active Substance: INFLIXIMAB
     Indication: Dermatomyositis
     Route: 065
  10. BARICITINIB [Suspect]
     Active Substance: BARICITINIB
     Indication: Dermatomyositis
     Route: 065
  11. RITUXIMAB [Suspect]
     Active Substance: RITUXIMAB
     Indication: Dermatomyositis
     Route: 065

REACTIONS (2)
  - Gastrointestinal disorder [Unknown]
  - Drug ineffective [Unknown]
